FAERS Safety Report 14381714 (Version 1)
Quarter: 2018Q1

REPORT INFORMATION
  Report Type: Other
  Country: US (occurrence: US)
  Receive Date: 20180112
  Receipt Date: 20180112
  Transmission Date: 20180509
  Serious: Yes (Death)
  Sender: FDA-Public Use
  Company Number: US-GENUS_LIFESCIENCES-USA-POI0580201800059

PATIENT
  Age: 21 Year
  Sex: Male

DRUGS (9)
  1. LAMOTRIGINE. [Suspect]
     Active Substance: LAMOTRIGINE
     Dates: end: 2016
  2. NAPROXEN. [Suspect]
     Active Substance: NAPROXEN
     Dates: end: 2016
  3. DIPHENHYDRAMINE. [Suspect]
     Active Substance: DIPHENHYDRAMINE
     Dates: end: 2016
  4. DOXYCYCLINE. [Suspect]
     Active Substance: DOXYCYCLINE
     Dates: end: 2016
  5. CETIRIZINE [Suspect]
     Active Substance: CETIRIZINE HYDROCHLORIDE
     Dates: end: 2016
  6. MARIJUANA [Suspect]
     Active Substance: CANNABIS SATIVA SUBSP. INDICA TOP
     Dates: end: 2016
  7. LEVOLET (LEVOTHYROXINE) [Suspect]
     Active Substance: LEVOTHYROXINE
     Dates: end: 2016
  8. VORTIOXETINE. [Suspect]
     Active Substance: VORTIOXETINE
     Dates: end: 2016
  9. FEXOFENADINE [Suspect]
     Active Substance: FEXOFENADINE\FEXOFENADINE HYDROCHLORIDE
     Dates: end: 2016

REACTIONS (1)
  - Completed suicide [Fatal]

NARRATIVE: CASE EVENT DATE: 2016
